FAERS Safety Report 12637024 (Version 1)
Quarter: 2016Q3

REPORT INFORMATION
  Report Type: Report from Study
  Country: JP (occurrence: JP)
  Receive Date: 20160809
  Receipt Date: 20160809
  Transmission Date: 20161109
  Serious: Yes (Hospitalization, Other)
  Sender: FDA-Public Use
  Company Number: JP-ASTELLAS-2016JP013088AA

PATIENT
  Age: 43 Year
  Sex: Male
  Weight: 59 kg

DRUGS (102)
  1. ALIMTA [Suspect]
     Active Substance: PEMETREXED DISODIUM
     Indication: LUNG ADENOCARCINOMA
     Route: 065
     Dates: start: 20150210, end: 20150210
  2. AVASTIN                            /00848101/ [Suspect]
     Active Substance: SIMVASTATIN
     Dosage: UNK UNK, UNKNOWN FREQ.
     Route: 065
     Dates: start: 20150312
  3. PREDONINE [Concomitant]
     Active Substance: PREDNISOLONE\PREDNISOLONE ACETATE\PREDNISOLONE SODIUM SUCCINATE
     Indication: LUPUS NEPHRITIS
     Route: 048
     Dates: start: 20080215, end: 20080411
  4. PREDONINE [Concomitant]
     Active Substance: PREDNISOLONE\PREDNISOLONE ACETATE\PREDNISOLONE SODIUM SUCCINATE
     Route: 048
     Dates: start: 20080711, end: 20080807
  5. PREDONINE [Concomitant]
     Active Substance: PREDNISOLONE\PREDNISOLONE ACETATE\PREDNISOLONE SODIUM SUCCINATE
     Route: 048
     Dates: start: 20090611, end: 20100404
  6. PL GRAN. [Concomitant]
     Active Substance: UNSPECIFIED INGREDIENT
     Indication: NASOPHARYNGITIS
     Route: 048
     Dates: start: 20110509, end: 20110515
  7. PL GRAN. [Concomitant]
     Active Substance: UNSPECIFIED INGREDIENT
     Route: 048
     Dates: start: 20140220, end: 20140225
  8. TRANSAMIN [Concomitant]
     Active Substance: TRANEXAMIC ACID
     Route: 048
     Dates: start: 20151015, end: 20151020
  9. MINOMYCIN [Concomitant]
     Active Substance: MINOCYCLINE HYDROCHLORIDE
     Route: 048
     Dates: start: 20150114, end: 20150128
  10. MINOMYCIN [Concomitant]
     Active Substance: MINOCYCLINE HYDROCHLORIDE
     Route: 048
     Dates: start: 20150512, end: 20150526
  11. FLUITRAN [Concomitant]
     Active Substance: TRICHLORMETHIAZIDE
     Indication: HYPERTENSION
     Route: 048
     Dates: start: 20131011, end: 20151214
  12. SENNOSIDE                          /00571901/ [Concomitant]
     Active Substance: SENNOSIDES A AND B
     Indication: DYSCHEZIA
     Route: 048
     Dates: start: 20150212, end: 20150213
  13. NERISONA [Concomitant]
     Active Substance: DIFLUCORTOLONE VALERATE
     Indication: ERYTHEMA
     Dosage: UNK UNK, UNKNOWN FREQ.
     Route: 065
     Dates: start: 20151015, end: 20151117
  14. TACROLIMUS. [Suspect]
     Active Substance: TACROLIMUS
     Indication: LUPUS NEPHRITIS
     Route: 048
     Dates: start: 20080215, end: 20080903
  15. ALIMTA [Suspect]
     Active Substance: PEMETREXED DISODIUM
     Dosage: UNK UNK, UNKNOWN FREQ.
     Route: 065
     Dates: start: 20150312
  16. ALIMTA [Suspect]
     Active Substance: PEMETREXED DISODIUM
     Dosage: UNK UNK, UNKNOWN FREQ.
     Route: 065
     Dates: start: 20151008, end: 20151008
  17. AVASTIN                            /00848101/ [Suspect]
     Active Substance: SIMVASTATIN
     Indication: LUNG ADENOCARCINOMA
     Route: 065
     Dates: start: 20150210, end: 20150210
  18. PL GRAN. [Concomitant]
     Active Substance: UNSPECIFIED INGREDIENT
     Route: 048
     Dates: start: 20121015, end: 20121019
  19. MINOMYCIN [Concomitant]
     Active Substance: MINOCYCLINE HYDROCHLORIDE
     Route: 048
     Dates: start: 20140320, end: 20140410
  20. MINOMYCIN [Concomitant]
     Active Substance: MINOCYCLINE HYDROCHLORIDE
     Route: 048
     Dates: start: 20151016, end: 20151030
  21. MOHRUS L [Concomitant]
     Active Substance: KETOPROFEN
     Indication: PROPHYLAXIS
  22. STADERM                            /00109204/ [Concomitant]
     Dosage: UNK UNK, UNKNOWN FREQ.
     Route: 065
     Dates: start: 20150511, end: 20150803
  23. SERENACE [Concomitant]
     Active Substance: HALOPERIDOL
     Indication: PRODUCT USED FOR UNKNOWN INDICATION
     Dosage: 0.3 G, ONCE DAILY
     Route: 048
     Dates: start: 20150212, end: 20150215
  24. FAMOTIDINE. [Concomitant]
     Active Substance: FAMOTIDINE
     Indication: PRODUCT USED FOR UNKNOWN INDICATION
     Route: 048
     Dates: start: 20150217, end: 20150316
  25. AZILVA [Concomitant]
     Active Substance: AZILSARTAN KAMEDOXOMIL
     Indication: PRODUCT USED FOR UNKNOWN INDICATION
     Route: 048
     Dates: start: 20151118
  26. AVASTIN                            /00848101/ [Suspect]
     Active Substance: SIMVASTATIN
     Dosage: UNK UNK, UNKNOWN FREQ.
     Route: 065
     Dates: start: 20151008, end: 20151008
  27. CRAVIT [Suspect]
     Active Substance: LEVOFLOXACIN
     Indication: PYREXIA
     Dosage: UNK UNK, UNKNOWN FREQ.
     Route: 048
     Dates: start: 20151226
  28. PREDONINE [Concomitant]
     Active Substance: PREDNISOLONE\PREDNISOLONE ACETATE\PREDNISOLONE SODIUM SUCCINATE
     Route: 048
     Dates: start: 20100405, end: 20120717
  29. PREDONINE [Concomitant]
     Active Substance: PREDNISOLONE\PREDNISOLONE ACETATE\PREDNISOLONE SODIUM SUCCINATE
     Route: 048
     Dates: start: 20120718, end: 20130217
  30. NU-LOTAN [Concomitant]
     Active Substance: LOSARTAN POTASSIUM
     Indication: HYPERTENSION
     Route: 048
     Dates: end: 20130516
  31. ORADOL                             /00093302/ [Concomitant]
     Dosage: UNK UNK, UNKNOWN FREQ.
     Route: 048
     Dates: start: 20140220, end: 20140224
  32. MINOMYCIN [Concomitant]
     Active Substance: MINOCYCLINE HYDROCHLORIDE
     Route: 048
     Dates: start: 20140918, end: 20141001
  33. MINOMYCIN [Concomitant]
     Active Substance: MINOCYCLINE HYDROCHLORIDE
     Route: 048
     Dates: start: 20150609, end: 20150623
  34. MINOMYCIN [Concomitant]
     Active Substance: MINOCYCLINE HYDROCHLORIDE
     Route: 048
     Dates: start: 20150805, end: 20150819
  35. ASPARA K [Concomitant]
     Active Substance: POTASSIUM ASPARTATE
     Route: 065
     Dates: start: 20150210, end: 20150210
  36. MANNITOL. [Concomitant]
     Active Substance: MANNITOL
     Indication: PRODUCT USED FOR UNKNOWN INDICATION
     Route: 065
     Dates: start: 20150210, end: 20150210
  37. MAGNESIUM SULFATE. [Concomitant]
     Active Substance: MAGNESIUM SULFATE
     Indication: PRODUCT USED FOR UNKNOWN INDICATION
     Route: 065
     Dates: start: 20150210, end: 20150210
  38. SENNOSIDE                          /00571901/ [Concomitant]
     Active Substance: SENNOSIDES A AND B
     Indication: CONSTIPATION
     Route: 048
     Dates: start: 20150221, end: 20150225
  39. BROTIZOLAM [Concomitant]
     Active Substance: BROTIZOLAM
     Indication: INSOMNIA
     Dosage: 0.25 MG, ONCE DAILY
     Route: 048
     Dates: start: 20150220, end: 20150226
  40. RINDERON VG [Concomitant]
     Active Substance: BETAMETHASONE VALERATE\GENTAMICIN SULFATE
     Indication: PRODUCT USED FOR UNKNOWN INDICATION
     Dosage: UNK UNK, UNKNOWN FREQ.
     Route: 065
     Dates: start: 20150511
  41. LOCOID [Concomitant]
     Active Substance: HYDROCORTISONE BUTYRATE
     Indication: ERYTHEMA
     Dosage: UNK UNK, UNKNOWN FREQ.
     Route: 065
     Dates: start: 20151015, end: 20151117
  42. ALIMTA [Suspect]
     Active Substance: PEMETREXED DISODIUM
     Indication: LUNG ADENOCARCINOMA
     Route: 065
     Dates: start: 20150210, end: 20150210
  43. ALOXI [Concomitant]
     Active Substance: PALONOSETRON HYDROCHLORIDE
     Indication: PROPHYLAXIS OF NAUSEA AND VOMITING
     Route: 065
     Dates: start: 20150210, end: 20150210
  44. NU-LOTAN [Concomitant]
     Active Substance: LOSARTAN POTASSIUM
     Indication: PROPHYLAXIS
  45. MINOMYCIN [Concomitant]
     Active Substance: MINOCYCLINE HYDROCHLORIDE
     Indication: ACNE
     Route: 048
     Dates: start: 20130322, end: 20130404
  46. MINOMYCIN [Concomitant]
     Active Substance: MINOCYCLINE HYDROCHLORIDE
     Route: 048
     Dates: start: 20130808, end: 20130828
  47. MINOMYCIN [Concomitant]
     Active Substance: MINOCYCLINE HYDROCHLORIDE
     Route: 048
     Dates: start: 20131115, end: 20131128
  48. MINOMYCIN [Concomitant]
     Active Substance: MINOCYCLINE HYDROCHLORIDE
     Route: 048
     Dates: start: 20140118, end: 20140131
  49. MINOMYCIN [Concomitant]
     Active Substance: MINOCYCLINE HYDROCHLORIDE
     Route: 048
     Dates: start: 20140520, end: 20140610
  50. FLUITRAN [Concomitant]
     Active Substance: TRICHLORMETHIAZIDE
     Indication: PROPHYLAXIS
     Route: 048
     Dates: start: 20151214
  51. METHYCOBAL [Concomitant]
     Active Substance: METHYLCOBALAMIN
     Indication: PRODUCT USED FOR UNKNOWN INDICATION
     Route: 065
     Dates: start: 20150204, end: 20150204
  52. PERAPRIN [Concomitant]
     Active Substance: METOCLOPRAMIDE
     Indication: PRODUCT USED FOR UNKNOWN INDICATION
     Route: 048
     Dates: start: 20150213
  53. REBAMIPIDE [Concomitant]
     Active Substance: REBAMIPIDE
     Indication: PROPHYLAXIS
     Route: 048
     Dates: start: 20150217, end: 20150316
  54. ZOLPIDEM [Concomitant]
     Active Substance: ZOLPIDEM\ZOLPIDEM TARTRATE
     Indication: INSOMNIA
     Route: 048
     Dates: start: 20150218, end: 20150219
  55. PREDONINE [Concomitant]
     Active Substance: PREDNISOLONE\PREDNISOLONE ACETATE\PREDNISOLONE SODIUM SUCCINATE
     Route: 048
     Dates: start: 20130218
  56. MUCOSTA [Concomitant]
     Active Substance: REBAMIPIDE
     Indication: PROPHYLAXIS
     Route: 048
     Dates: end: 20150216
  57. TRANSAMIN [Concomitant]
     Active Substance: TRANEXAMIC ACID
     Indication: NASOPHARYNGITIS
     Route: 048
     Dates: start: 20121015, end: 20121019
  58. ADALAT [Concomitant]
     Active Substance: NIFEDIPINE
     Indication: HYPERTENSION
     Route: 048
     Dates: start: 20130516, end: 20140917
  59. MINOMYCIN [Concomitant]
     Active Substance: MINOCYCLINE HYDROCHLORIDE
     Route: 048
     Dates: start: 20130912, end: 20131002
  60. MINOMYCIN [Concomitant]
     Active Substance: MINOCYCLINE HYDROCHLORIDE
     Route: 048
     Dates: start: 20141217, end: 20141231
  61. PROEMEND [Concomitant]
     Active Substance: FOSAPREPITANT
     Indication: PRODUCT USED FOR UNKNOWN INDICATION
     Route: 065
     Dates: start: 20150210, end: 20150210
  62. KYTRIL [Concomitant]
     Active Substance: GRANISETRON HYDROCHLORIDE
     Indication: PRODUCT USED FOR UNKNOWN INDICATION
     Route: 048
     Dates: start: 20150213
  63. DUAC [Concomitant]
     Active Substance: BENZOYL PEROXIDE\CLINDAMYCIN PHOSPHATE
     Indication: PRODUCT USED FOR UNKNOWN INDICATION
     Dosage: UNK UNK, UNKNOWN FREQ.
     Route: 065
     Dates: start: 20150804, end: 20151014
  64. CISPLATIN. [Suspect]
     Active Substance: CISPLATIN
     Indication: LUNG ADENOCARCINOMA
     Route: 065
     Dates: start: 20150210, end: 20150210
  65. ALIMTA [Suspect]
     Active Substance: PEMETREXED DISODIUM
     Dosage: UNK UNK, UNKNOWN FREQ.
     Route: 065
     Dates: start: 20150312
  66. PREDONINE [Concomitant]
     Active Substance: PREDNISOLONE\PREDNISOLONE ACETATE\PREDNISOLONE SODIUM SUCCINATE
     Indication: BLOOD CREATININE INCREASED
     Route: 048
     Dates: start: 20080412, end: 20080509
  67. PREDONINE [Concomitant]
     Active Substance: PREDNISOLONE\PREDNISOLONE ACETATE\PREDNISOLONE SODIUM SUCCINATE
     Indication: BETA 2 MICROGLOBULIN INCREASED
     Route: 048
     Dates: start: 20080510, end: 20080606
  68. PREDONINE [Concomitant]
     Active Substance: PREDNISOLONE\PREDNISOLONE ACETATE\PREDNISOLONE SODIUM SUCCINATE
     Route: 048
     Dates: start: 20080607, end: 20080710
  69. NU-LOTAN [Concomitant]
     Active Substance: LOSARTAN POTASSIUM
     Indication: HYPERTENSION
     Route: 048
     Dates: start: 20130517
  70. PL GRAN. [Concomitant]
     Active Substance: UNSPECIFIED INGREDIENT
     Route: 048
     Dates: start: 20151015, end: 20151020
  71. ORADOL                             /00093302/ [Concomitant]
     Indication: NASOPHARYNGITIS
     Route: 049
     Dates: start: 20130218, end: 20130222
  72. MINOMYCIN [Concomitant]
     Active Substance: MINOCYCLINE HYDROCHLORIDE
     Route: 048
     Dates: start: 20131227, end: 20140109
  73. MINOMYCIN [Concomitant]
     Active Substance: MINOCYCLINE HYDROCHLORIDE
     Route: 048
     Dates: start: 20151215, end: 20151229
  74. STADERM                            /00109204/ [Concomitant]
     Indication: ACNE
     Route: 061
     Dates: start: 20140618, end: 20140825
  75. ASPARA K [Concomitant]
     Active Substance: POTASSIUM ASPARTATE
     Indication: PRODUCT USED FOR UNKNOWN INDICATION
     Route: 065
     Dates: start: 20150210, end: 20150210
  76. NIFLAN [Concomitant]
     Indication: CONJUNCTIVAL HYPERAEMIA
     Dosage: UNK UNK, UNKNOWN FREQ.
     Route: 047
     Dates: start: 20150224, end: 20150227
  77. TACROLIMUS. [Suspect]
     Active Substance: TACROLIMUS
     Route: 048
     Dates: start: 20080904, end: 20081105
  78. TACROLIMUS. [Suspect]
     Active Substance: TACROLIMUS
     Route: 048
     Dates: start: 20081106
  79. CISPLATIN. [Suspect]
     Active Substance: CISPLATIN
     Indication: LUNG ADENOCARCINOMA
     Route: 065
     Dates: start: 20150210, end: 20150210
  80. PREDONINE [Concomitant]
     Active Substance: PREDNISOLONE\PREDNISOLONE ACETATE\PREDNISOLONE SODIUM SUCCINATE
     Route: 048
     Dates: start: 20090402, end: 20090610
  81. GASTER [Concomitant]
     Active Substance: FAMOTIDINE
     Indication: PROPHYLAXIS
     Route: 048
  82. MINOMYCIN [Concomitant]
     Active Substance: MINOCYCLINE HYDROCHLORIDE
     Route: 048
     Dates: start: 20130711, end: 20130724
  83. MINOMYCIN [Concomitant]
     Active Substance: MINOCYCLINE HYDROCHLORIDE
     Route: 048
     Dates: start: 20141016, end: 20141030
  84. MINOMYCIN [Concomitant]
     Active Substance: MINOCYCLINE HYDROCHLORIDE
     Route: 048
     Dates: start: 20150205, end: 20150219
  85. MINOMYCIN [Concomitant]
     Active Substance: MINOCYCLINE HYDROCHLORIDE
     Route: 048
     Dates: start: 20150414, end: 20150428
  86. MINOMYCIN [Concomitant]
     Active Substance: MINOCYCLINE HYDROCHLORIDE
     Route: 048
     Dates: start: 20150707, end: 20150721
  87. MINOMYCIN [Concomitant]
     Active Substance: MINOCYCLINE HYDROCHLORIDE
     Route: 048
     Dates: start: 20151119, end: 20151202
  88. PANVITAN                           /05664201/ [Concomitant]
     Active Substance: VITAMINS
     Indication: PROPHYLAXIS
     Route: 048
     Dates: start: 20150204, end: 20150218
  89. DECADRON [Concomitant]
     Active Substance: DEXAMETHASONE
     Indication: PRODUCT USED FOR UNKNOWN INDICATION
     Route: 065
     Dates: start: 20150210, end: 20150210
  90. FEBURIC [Concomitant]
     Active Substance: FEBUXOSTAT
     Indication: HYPERURICAEMIA
     Route: 048
     Dates: start: 20150414
  91. NIZORAL [Concomitant]
     Active Substance: KETOCONAZOLE
     Indication: PRODUCT USED FOR UNKNOWN INDICATION
     Dosage: UNK UNK, UNKNOWN FREQ.
     Route: 065
     Dates: start: 20150217, end: 20150510
  92. HIRUDOID                           /00723701/ [Concomitant]
     Active Substance: PENTOSAN POLYSULFATE SODIUM
     Indication: ERYTHEMA
     Dosage: UNK UNK, UNKNOWN FREQ.
     Route: 065
     Dates: start: 20151118
  93. ALIMTA [Suspect]
     Active Substance: PEMETREXED DISODIUM
     Dosage: UNK UNK, UNKNOWN FREQ.
     Route: 065
     Dates: start: 20151008, end: 20151008
  94. CARBOPLATIN. [Suspect]
     Active Substance: CARBOPLATIN
     Indication: LUNG ADENOCARCINOMA
     Dosage: UNK UNK, UNKNOWN FREQ.
     Route: 065
     Dates: start: 20150312
  95. PREDONINE [Concomitant]
     Active Substance: PREDNISOLONE\PREDNISOLONE ACETATE\PREDNISOLONE SODIUM SUCCINATE
     Route: 048
     Dates: start: 20080807, end: 20090401
  96. MUCOSTA [Concomitant]
     Active Substance: REBAMIPIDE
     Route: 048
     Dates: start: 20150317
  97. ORADOL                             /00093302/ [Concomitant]
     Route: 048
     Dates: start: 20150413, end: 20150418
  98. ADALAT [Concomitant]
     Active Substance: NIFEDIPINE
     Indication: PROPHYLAXIS
     Route: 048
     Dates: start: 20140918
  99. MINOMYCIN [Concomitant]
     Active Substance: MINOCYCLINE HYDROCHLORIDE
     Route: 048
     Dates: start: 20160116, end: 20160130
  100. MOHRUS L [Concomitant]
     Active Substance: KETOPROFEN
     Indication: BACK PAIN
     Route: 061
     Dates: start: 20110907
  101. DECADRON [Concomitant]
     Active Substance: DEXAMETHASONE
     Route: 065
     Dates: start: 20150211, end: 20150213
  102. MAGLAX [Concomitant]
     Active Substance: MAGNESIUM OXIDE
     Indication: DYSCHEZIA
     Route: 048
     Dates: start: 20150213, end: 20150218

REACTIONS (10)
  - Constipation [Recovered/Resolved]
  - Blood creatinine increased [Not Recovered/Not Resolved]
  - Tendonitis [Not Recovered/Not Resolved]
  - Conjunctival hyperaemia [Recovered/Resolved]
  - Hyperuricaemia [Recovered/Resolved]
  - Pyrexia [Recovered/Resolved]
  - Insomnia [Recovered/Resolved]
  - Platelet count decreased [Recovered/Resolved]
  - Tendon rupture [Not Recovered/Not Resolved]
  - Erythema [Recovering/Resolving]

NARRATIVE: CASE EVENT DATE: 20150212
